FAERS Safety Report 18255473 (Version 1)
Quarter: 2020Q3

REPORT INFORMATION
  Report Type: Report from Study
  Country: MX (occurrence: MX)
  Receive Date: 20200910
  Receipt Date: 20200910
  Transmission Date: 20201103
  Serious: Yes (Death, Life-Threatening, Hospitalization)
  Sender: FDA-Public Use
  Company Number: MX-VIELABIO-VIE-2020-MX-000005

PATIENT

DRUGS (12)
  1. PLACEBO [Suspect]
     Active Substance: UNSPECIFIED INGREDIENT
     Dosage: 300 MG
     Route: 042
     Dates: start: 20161026, end: 20161026
  2. NITROFURANTOIN. [Concomitant]
     Active Substance: NITROFURANTOIN
     Indication: PRODUCT USED FOR UNKNOWN INDICATION
     Dosage: UNK
     Dates: start: 20160823, end: 20161104
  3. KETOPROFEN. [Concomitant]
     Active Substance: KETOPROFEN
     Indication: PRODUCT USED FOR UNKNOWN INDICATION
     Dosage: UNK
     Dates: start: 20160528, end: 20161020
  4. OMEPRAZOLE. [Concomitant]
     Active Substance: OMEPRAZOLE
     Indication: PRODUCT USED FOR UNKNOWN INDICATION
     Dosage: UNK
     Dates: start: 20161021
  5. CARBAMAZEPINE. [Concomitant]
     Active Substance: CARBAMAZEPINE
     Indication: PRODUCT USED FOR UNKNOWN INDICATION
     Dosage: UNK
     Dates: start: 201303, end: 20161104
  6. PLACEBO [Suspect]
     Active Substance: UNSPECIFIED INGREDIENT
     Indication: NEUROMYELITIS OPTICA SPECTRUM DISORDER
     Dosage: 300 MG
     Route: 042
     Dates: start: 20160322, end: 20160322
  7. AMITRIPTYLINE [Concomitant]
     Active Substance: AMITRIPTYLINE
     Indication: PRODUCT USED FOR UNKNOWN INDICATION
     Dosage: UNK
     Dates: start: 201406, end: 20161104
  8. GABAPENTIN. [Concomitant]
     Active Substance: GABAPENTIN
     Indication: PRODUCT USED FOR UNKNOWN INDICATION
     Dosage: UNK
     Dates: start: 201303, end: 20161104
  9. TRAMACET [Concomitant]
     Active Substance: ACETAMINOPHEN\TRAMADOL
     Indication: PRODUCT USED FOR UNKNOWN INDICATION
     Dosage: UNK
     Dates: start: 20161021
  10. ASPIRIN (E.C.) [Concomitant]
     Active Substance: ASPIRIN
     Indication: PRODUCT USED FOR UNKNOWN INDICATION
     Dosage: UNK
     Dates: start: 20161021
  11. BLINDED MEDI?551 [Suspect]
     Active Substance: INEBILIZUMAB
     Indication: NEUROMYELITIS OPTICA SPECTRUM DISORDER
     Dosage: 300 MG
     Route: 042
     Dates: start: 20160322, end: 20160322
  12. BLINDED MEDI?551 [Suspect]
     Active Substance: INEBILIZUMAB
     Dosage: 300 MG
     Route: 042
     Dates: start: 20161026, end: 20161026

REACTIONS (5)
  - Progressive multifocal leukoencephalopathy [Unknown]
  - Neuromyelitis optica spectrum disorder [Unknown]
  - Central nervous system infection [Unknown]
  - Post cardiac arrest syndrome [Unknown]
  - Pneumonia [Fatal]

NARRATIVE: CASE EVENT DATE: 20161029
